FAERS Safety Report 4894726-3 (Version None)
Quarter: 2006Q1

REPORT INFORMATION
  Report Type: 
  Country: None (occurrence: None)
  Receive Date: 20060127
  Receipt Date: 20060127
  Transmission Date: 20060701
  Serious: Yes (Disabling)
  Sender: FDA-Public Use
  Company Number: None

PATIENT
  Age: 81 Year
  Sex: Male
  Weight: 106.5953 kg

DRUGS (14)
  1. TEQUIN [Suspect]
     Indication: URINARY TRACT INFECTION
     Dosage: 200 MG QD PO
     Route: 048
     Dates: start: 20050826, end: 20050902
  2. ATENOLOL [Concomitant]
  3. CYNOCOBALAMIN [Concomitant]
  4. FELODIPINE [Concomitant]
  5. FUROSEMIDE [Concomitant]
  6. GABAPENTIN [Concomitant]
  7. NPH INSULIN [Concomitant]
  8. REGULAR INSULIN [Concomitant]
  9. LISINOPRIL [Concomitant]
  10. METOCLOPRAMIDE HCL [Concomitant]
  11. MULTI-VITAMIN [Concomitant]
  12. NITROGLYCERIN [Concomitant]
  13. OMEPRAZOLE [Concomitant]
  14. SIMVASTATIN [Concomitant]

REACTIONS (4)
  - CONFUSIONAL STATE [None]
  - DEMENTIA [None]
  - HALLUCINATION [None]
  - URINARY TRACT INFECTION [None]
